FAERS Safety Report 12568281 (Version 1)
Quarter: 2016Q3

REPORT INFORMATION
  Report Type: Spontaneous
  Country: US (occurrence: US)
  Receive Date: 20160718
  Receipt Date: 20160718
  Transmission Date: 20161109
  Serious: No
  Sender: FDA-Public Use
  Company Number: US-CELGENEUS-USA-2016071715

PATIENT
  Age: 60 Year
  Sex: Female

DRUGS (3)
  1. LITHIUM. [Concomitant]
     Active Substance: LITHIUM
     Indication: BIPOLAR DISORDER
     Route: 065
  2. OTEZLA [Suspect]
     Active Substance: APREMILAST
     Indication: PSORIASIS
     Dosage: 60 MILLIGRAM
     Route: 048
     Dates: start: 201606
  3. RISPERDAL [Concomitant]
     Active Substance: RISPERIDONE
     Indication: BIPOLAR DISORDER
     Route: 065

REACTIONS (5)
  - Feeling abnormal [Not Recovered/Not Resolved]
  - Enuresis [Not Recovered/Not Resolved]
  - Drug dose omission [Not Recovered/Not Resolved]
  - Saliva altered [Not Recovered/Not Resolved]
  - Oedema peripheral [Not Recovered/Not Resolved]

NARRATIVE: CASE EVENT DATE: 2016
